FAERS Safety Report 7776771-3 (Version None)
Quarter: 2011Q3

REPORT INFORMATION
  Report Type: 
  Country: None (occurrence: None)
  Receive Date: 20110926
  Receipt Date: 20110506
  Transmission Date: 20111222
  Serious: No
  Sender: FDA-Public Use
  Company Number: US-BAYER-2011-040672

PATIENT
  Age: 19 Year
  Sex: Male
  Weight: 68.027 kg

DRUGS (1)
  1. ULTRAVIST 150 [Suspect]
     Indication: COMPUTERISED TOMOGRAM
     Dosage: 50 ML, UNK
     Route: 042
     Dates: start: 20110506

REACTIONS (3)
  - OCULAR HYPERAEMIA [None]
  - SNEEZING [None]
  - EYE PRURITUS [None]
